FAERS Safety Report 7198066-1 (Version None)
Quarter: 2010Q4

REPORT INFORMATION
  Report Type: 
  Country: None (occurrence: None)
  Receive Date: 20101213
  Receipt Date: 20101125
  Transmission Date: 20110411
  Serious: Yes (Other)
  Sender: FDA-Public Use
  Company Number: GB-ACCORD-006945

PATIENT
  Age: 43 Year
  Sex: Female

DRUGS (3)
  1. TOPIRAMATE [Suspect]
     Indication: MIGRAINE
     Dosage: 25.00 MG-1.00PER -1.0 DAYS
  2. AMITRIPTYLINE [Concomitant]
  3. PROPRANOLOL [Concomitant]

REACTIONS (4)
  - CHOROIDAL EFFUSION [None]
  - PHOTOPSIA [None]
  - RETINAL DETACHMENT [None]
  - RETINAL PIGMENT EPITHELIOPATHY [None]
